FAERS Safety Report 19179756 (Version 1)
Quarter: 2021Q2

REPORT INFORMATION
  Report Type: Spontaneous
  Country: US (occurrence: US)
  Receive Date: 20210426
  Receipt Date: 20210426
  Transmission Date: 20210717
  Serious: No
  Sender: FDA-Public Use
  Company Number: None

PATIENT
  Age: 58 Year
  Sex: Female
  Weight: 72.45 kg

DRUGS (9)
  1. CENTRUM 50 = VITAMINS [Concomitant]
  2. AREDS [Concomitant]
     Active Substance: MINERALS\VITAMINS
  3. VD3 [Concomitant]
  4. VB A2 INJECTIONS [Concomitant]
  5. COPAXONE [Suspect]
     Active Substance: GLATIRAMER ACETATE
     Indication: RELAPSING MULTIPLE SCLEROSIS
     Dosage: ?          QUANTITY:12 INJECTION(S);OTHER FREQUENCY:1 INJECTION 3 TIME;OTHER ROUTE:SUB INJECTION?
     Dates: start: 20200626
  6. SYNTHROID [Concomitant]
     Active Substance: LEVOTHYROXINE SODIUM
  7. AMIRIPTYLINE [Concomitant]
  8. XANAX [Concomitant]
     Active Substance: ALPRAZOLAM
  9. ADDERALL [Concomitant]
     Active Substance: AMPHETAMINE ASPARTATE\AMPHETAMINE SULFATE\DEXTROAMPHETAMINE SACCHARATE\DEXTROAMPHETAMINE SULFATE

REACTIONS (1)
  - Malignant melanoma [None]

NARRATIVE: CASE EVENT DATE: 20210219
